FAERS Safety Report 26162299 (Version 1)
Quarter: 2025Q4

REPORT INFORMATION
  Report Type: Spontaneous
  Country: US (occurrence: US)
  Receive Date: 20251216
  Receipt Date: 20251216
  Transmission Date: 20260118
  Serious: No
  Sender: ALCON
  Company Number: US-ALCON LABORATORIES-ALC2025US005699

PATIENT
  Sex: Female

DRUGS (1)
  1. EYSUVIS [Suspect]
     Active Substance: LOTEPREDNOL ETABONATE
     Indication: Product used for unknown indication
     Dosage: INSTILL 1 DROP INTO BOTH EYES EVERY MORNING
     Route: 047
     Dates: start: 20250908

REACTIONS (2)
  - Intentional overdose [Unknown]
  - Product prescribing error [Unknown]
